FAERS Safety Report 20562207 (Version 2)
Quarter: 2022Q1

REPORT INFORMATION
  Report Type: Spontaneous
  Country: CH (occurrence: CH)
  Receive Date: 20220307
  Receipt Date: 20220311
  Transmission Date: 20220423
  Serious: Yes (Other)
  Sender: FDA-Public Use
  Company Number: CH-AMERICAN REGENT INC-2022000523

PATIENT
  Age: 30 Year
  Sex: Female

DRUGS (5)
  1. FERINJECT [Suspect]
     Active Substance: FERRIC CARBOXYMALTOSE
     Indication: Iron deficiency anaemia
     Dosage: 500 MG, 1 IN 1 ONCE
     Dates: start: 20220120, end: 20220120
  2. NATALBEN PLUS [Concomitant]
     Indication: Product used for unknown indication
     Dosage: UNK
     Route: 065
  3. ANDREAMAG [Concomitant]
     Indication: Product used for unknown indication
     Dosage: UNK
     Route: 065
  4. CARDIODORON [HYOSCYAMUS NIGER OIL;ONOPORDUM ACANTHIUM OIL;PRIMULA SPP. [Concomitant]
     Indication: Product used for unknown indication
     Dosage: UNK
     Route: 065
  5. BRYOPHYLLUM [Concomitant]
     Indication: Product used for unknown indication
     Dosage: UNK
     Route: 065

REACTIONS (4)
  - Maternal exposure during pregnancy [Unknown]
  - Pruritus [Recovered/Resolved]
  - Chills [Recovered/Resolved]
  - Rash [Recovered/Resolved]

NARRATIVE: CASE EVENT DATE: 20220120
